FAERS Safety Report 8043630-0 (Version None)
Quarter: 2012Q1

REPORT INFORMATION
  Report Type: 
  Country: None (occurrence: None)
  Receive Date: 20120112
  Receipt Date: 20120103
  Transmission Date: 20120608
  Serious: Yes (Other)
  Sender: FDA-Public Use
  Company Number: US-ASTRAZENECA-2010SE08198

PATIENT
  Age: 51 Year
  Sex: Female
  Weight: 81.6 kg

DRUGS (17)
  1. NEXIUM [Interacting]
     Dosage: ONCE A DAY
     Route: 048
  2. ATACAND [Concomitant]
  3. PRILOSEC OTC [Suspect]
     Route: 048
  4. NEXIUM [Interacting]
     Dosage: ONCE A DAY
     Route: 048
  5. CRESTOR [Interacting]
     Route: 048
     Dates: start: 20040101, end: 20110801
  6. PROGESTERINE IUD [Concomitant]
  7. MEVACOR [Concomitant]
  8. CRESTOR [Interacting]
     Indication: BLOOD CHOLESTEROL INCREASED
     Route: 048
     Dates: start: 20040101
  9. CRESTOR [Interacting]
     Route: 048
  10. PREDNISONE [Concomitant]
  11. NEXIUM [Interacting]
     Route: 048
     Dates: end: 20111223
  12. CRESTOR [Interacting]
     Route: 048
  13. CRESTOR [Interacting]
     Route: 048
     Dates: start: 20050201
  14. VERALANCE [Concomitant]
  15. NEXIUM [Interacting]
     Dosage: TWO TIMES A DAY
     Route: 048
  16. XANAX [Concomitant]
  17. ZETIA [Suspect]
     Route: 065
     Dates: start: 20040101, end: 20100301

REACTIONS (23)
  - FLUSHING [None]
  - SOMNOLENCE [None]
  - DRUG INTERACTION [None]
  - MALAISE [None]
  - ILL-DEFINED DISORDER [None]
  - WEIGHT DECREASED [None]
  - ARTHRALGIA [None]
  - SINUSITIS [None]
  - GASTRIC DISORDER [None]
  - FATIGUE [None]
  - NAUSEA [None]
  - ABDOMINAL PAIN UPPER [None]
  - TENDON RUPTURE [None]
  - MUSCULOSKELETAL PAIN [None]
  - VOMITING [None]
  - VISION BLURRED [None]
  - INSOMNIA [None]
  - MUSCLE DISORDER [None]
  - MUSCULOSKELETAL CHEST PAIN [None]
  - PAIN IN EXTREMITY [None]
  - PAIN [None]
  - ASTHENIA [None]
  - MYALGIA [None]
